FAERS Safety Report 19384541 (Version 4)
Quarter: 2025Q2

REPORT INFORMATION
  Report Type: Report from Study
  Country: BR (occurrence: BR)
  Receive Date: 20210607
  Receipt Date: 20250519
  Transmission Date: 20250716
  Serious: Yes (Hospitalization, Other)
  Sender: TAKEDA
  Company Number: BR-TAKEDA-2021TUS035273

PATIENT
  Age: 47 Year
  Sex: Male

DRUGS (12)
  1. HEMO-8R [Suspect]
     Active Substance: ANTIHEMOPHILIC FACTOR, HUMAN RECOMBINANT
     Indication: Haemophilia
  2. HEMO-8R [Suspect]
     Active Substance: ANTIHEMOPHILIC FACTOR, HUMAN RECOMBINANT
     Indication: Factor VIII deficiency
     Dosage: 2500 INTERNATIONAL UNIT, 3/WEEK
  3. HEMO-8R [Suspect]
     Active Substance: ANTIHEMOPHILIC FACTOR, HUMAN RECOMBINANT
  4. HEMO-8R [Suspect]
     Active Substance: ANTIHEMOPHILIC FACTOR, HUMAN RECOMBINANT
  5. HEMO-8R [Suspect]
     Active Substance: ANTIHEMOPHILIC FACTOR, HUMAN RECOMBINANT
     Dosage: 2500 INTERNATIONAL UNIT, 3/WEEK
  6. PANTOPRAZOLE [Concomitant]
     Active Substance: PANTOPRAZOLE
  7. PREDNISONE [Concomitant]
     Active Substance: PREDNISONE
     Indication: Pain
  8. ELECTROLYTES NOS\POLYETHYLENE GLYCOL 3350 [Concomitant]
     Active Substance: ELECTROLYTES NOS\POLYETHYLENE GLYCOL 3350
     Indication: Intestinal obstruction
  9. DOMPERIDONE [Concomitant]
     Active Substance: DOMPERIDONE
  10. DIPYRONE [Concomitant]
     Active Substance: DIPYRONE
     Indication: Pain
  11. DIMETHICONE [Concomitant]
     Active Substance: DIMETHICONE
     Indication: Flatulence
  12. STELARA [Concomitant]
     Active Substance: USTEKINUMAB
     Indication: Crohn^s disease
     Dosage: 90 MILLIGRAM, MONTHLY
     Dates: start: 2021

REACTIONS (9)
  - Intestinal obstruction [Unknown]
  - Haemorrhagic stroke [Unknown]
  - Hernia [Unknown]
  - Crohn^s disease [Unknown]
  - Inappropriate schedule of product administration [Unknown]
  - Disease complication [Unknown]
  - Haemorrhage [Unknown]
  - Irritable bowel syndrome [Unknown]
  - Arthralgia [Recovering/Resolving]

NARRATIVE: CASE EVENT DATE: 20191101
